FAERS Safety Report 4639216-8 (Version None)
Quarter: 2005Q2

REPORT INFORMATION
  Report Type: 
  Country: None (occurrence: None)
  Receive Date: 20050419
  Receipt Date: 20050317
  Transmission Date: 20051028
  Serious: Yes (Other)
  Sender: FDA-Public Use
  Company Number: PHEH2005US03345

PATIENT
  Age: 57 Year
  Sex: Female

DRUGS (6)
  1. LAMISIL [Suspect]
     Indication: NAIL TINEA
     Dosage: 250 MG, QD
     Route: 048
     Dates: start: 20010101, end: 20010101
  2. LAMISIL [Suspect]
     Dosage: 250 MG, QD
     Route: 048
     Dates: start: 20020101, end: 20020101
  3. SPORANOX [Concomitant]
  4. MULTI-VITAMINS [Concomitant]
  5. OSCAL 500-D [Concomitant]
  6. PREMARIN [Concomitant]

REACTIONS (3)
  - DRUG INEFFECTIVE [None]
  - LYMPHADENECTOMY [None]
  - NON-HODGKIN'S LYMPHOMA [None]
